FAERS Safety Report 7400985-5 (Version None)
Quarter: 2011Q2

REPORT INFORMATION
  Report Type: 
  Country: None (occurrence: None)
  Receive Date: 20110407
  Receipt Date: 20110326
  Transmission Date: 20111010
  Serious: Yes (Other)
  Sender: FDA-Public Use
  Company Number: PHHY2011MX25338

PATIENT
  Sex: Female

DRUGS (1)
  1. ACLASTA [Suspect]
     Indication: BONE DISORDER
     Dosage: 5 MG/100 ML
     Route: 042
     Dates: start: 20100326

REACTIONS (1)
  - JAW DISORDER [None]
